FAERS Safety Report 7900941-4 (Version None)
Quarter: 2011Q4

REPORT INFORMATION
  Report Type: 
  Country: None (occurrence: None)
  Receive Date: 20111108
  Receipt Date: 20111026
  Transmission Date: 20120403
  Serious: Yes (Hospitalization, Other)
  Sender: FDA-Public Use
  Company Number: IT-ELI_LILLY_AND_COMPANY-IT201110000767

PATIENT
  Sex: Female

DRUGS (6)
  1. PANTOPRAZOLE [Concomitant]
     Dosage: 40 MG, QD
  2. POLYETHYLENE GLYCOL [Concomitant]
     Dosage: 2 DF, QD
  3. ZYPREXA [Suspect]
     Dosage: 5 MG, BID
     Dates: start: 20080101, end: 20110714
  4. CITALOPRAM HYDROBROMIDE [Concomitant]
     Dosage: 20 MG, QD
  5. ZYPREXA [Suspect]
     Dosage: 10 MG, QD
     Dates: start: 20111001
  6. CRESTOR [Concomitant]
     Dosage: 1 DF, QD

REACTIONS (3)
  - ELECTROCARDIOGRAM T WAVE ABNORMAL [None]
  - ELECTROCARDIOGRAM QT PROLONGED [None]
  - CARDIOMYOPATHY [None]
